FAERS Safety Report 6825990-9 (Version None)
Quarter: 2010Q3

REPORT INFORMATION
  Report Type: 
  Country: None (occurrence: None)
  Receive Date: 20100709
  Receipt Date: 20100630
  Transmission Date: 20110219
  Serious: Yes (Hospitalization)
  Sender: FDA-Public Use
  Company Number: US-JNJFOC-20100700389

PATIENT
  Sex: Male
  Weight: 85.73 kg

DRUGS (3)
  1. FENTANYL [Suspect]
     Indication: NEURALGIA
     Dosage: NDC # 0781-7241-55
     Route: 062
  2. FENTANYL [Suspect]
     Route: 062
  3. DURAGESIC-100 [Suspect]
     Indication: NEURALGIA
     Route: 062

REACTIONS (6)
  - APPLICATION SITE ERYTHEMA [None]
  - APPLICATION SITE RASH [None]
  - DRUG ADMINISTERED AT INAPPROPRIATE SITE [None]
  - INTERVERTEBRAL DISC PROTRUSION [None]
  - PRODUCT ADHESION ISSUE [None]
  - WRONG TECHNIQUE IN DRUG USAGE PROCESS [None]
